FAERS Safety Report 17305732 (Version 3)
Quarter: 2023Q1

REPORT INFORMATION
  Report Type: Spontaneous
  Country: US (occurrence: US)
  Receive Date: 20200123
  Receipt Date: 20230302
  Transmission Date: 20230418
  Serious: No
  Sender: FDA-Public Use
  Company Number: US-AMGEN-USASP2020008834

PATIENT
  Age: 81 Year
  Sex: Female

DRUGS (2)
  1. REPATHA [Suspect]
     Active Substance: EVOLOCUMAB
     Indication: Hypercholesterolaemia
     Dosage: 140 MILLIGRAM, Q2WK
     Route: 065
     Dates: start: 20200116
  2. REPATHA [Suspect]
     Active Substance: EVOLOCUMAB
     Dosage: UNK
     Route: 065

REACTIONS (4)
  - Injection site pain [Unknown]
  - Injection site bruising [Unknown]
  - Accidental exposure to product [Unknown]
  - Device use error [Unknown]

NARRATIVE: CASE EVENT DATE: 20200116
